FAERS Safety Report 4985438-6 (Version None)
Quarter: 2006Q2

REPORT INFORMATION
  Report Type: 
  Country: None (occurrence: None)
  Receive Date: 20060428
  Receipt Date: 20060424
  Transmission Date: 20061013
  Serious: Yes (Other)
  Sender: FDA-Public Use
  Company Number: FR-RB-3172-2006

PATIENT
  Age: 36 Year
  Sex: Male

DRUGS (3)
  1. BUPRENORPHINE HCL [Suspect]
     Indication: DRUG USE FOR UNKNOWN INDICATION
     Route: 055
     Dates: start: 19980101, end: 20010101
  2. BUPRENORPHINE HCL [Suspect]
     Route: 055
     Dates: start: 20010101
  3. BUPRENORPHINE HCL [Suspect]
     Dosage: 1/2 TABLET TID-QID
     Route: 055
     Dates: start: 20030101

REACTIONS (3)
  - INTENTIONAL DRUG MISUSE [None]
  - LYMPHOMA [None]
  - NASAL MUCOSAL DISORDER [None]
